FAERS Safety Report 4700087-2 (Version None)
Quarter: 2005Q2

REPORT INFORMATION
  Report Type: 
  Country: None (occurrence: None)
  Receive Date: 20050623
  Receipt Date: 20050609
  Transmission Date: 20051028
  Serious: Yes (Hospitalization)
  Sender: FDA-Public Use
  Company Number: 200412690BCC

PATIENT
  Sex: Male

DRUGS (9)
  1. ALEVE [Suspect]
     Indication: DEMENTIA ALZHEIMER'S TYPE
     Dosage: BID, ORAL
     Route: 048
  2. ALEVE [Suspect]
     Indication: PROPHYLAXIS
     Dosage: BID, ORAL
     Route: 048
  3. ASPIRIN [Concomitant]
  4. LOPRESSOR [Concomitant]
  5. LIPITOR [Concomitant]
  6. MULTI-VITAMINS [Concomitant]
  7. VIT. C [Concomitant]
  8. VIT. E [Concomitant]
  9. DOXAZOSIN [Concomitant]

REACTIONS (1)
  - AORTIC ANEURYSM [None]
